FAERS Safety Report 8978670 (Version 1)
Quarter: 2012Q4

REPORT INFORMATION
  Report Type: Spontaneous
  Country: FR (occurrence: None)
  Receive Date: 20121105
  Receipt Date: 20121105
  Transmission Date: 20130627
  Serious: Yes (Hospitalization, Other)
  Sender: FDA-Public Use
  Company Number: ENTC2012-0501

PATIENT
  Age: 73 Year
  Sex: Female

DRUGS (15)
  1. STALEVO (LEVODOPA, CARBIDOPA, ENTACAPONE) [Suspect]
     Indication: PARKINSON^S DISEASE
     Dosage: 125/31.25/200 mg, 1 tablet 5 times per day (07:00 AM, 10:00 AM, 01:00 PM, 04:00 PM and 07:00 PM)
     Route: 048
     Dates: start: 20120622, end: 20120806
  2. STALEVO (LEVODOPA, CARBIDOPA, ENTACAPONE) [Suspect]
     Indication: PARKINSON^S DISEASE
     Dosage: strength: 125/31.25/200 mg
     Route: 048
     Dates: start: 20120806
  3. STALEVO (LEVODOPA, CARBIDOPA, ENTACAPONE) [Suspect]
     Indication: PARKINSON^S DISEASE
     Dosage: 100/25/200 mg at 1 tablet 5 times per day (07:00 AM, 10:00 AM, 01:00 PM, 04:00 PM and 07:00 PM)
     Route: 048
     Dates: start: 20120822
  4. COAPROVEL [Concomitant]
  5. EFFERALOAN [Concomitant]
  6. PHOCYTAN [Concomitant]
  7. NICOBION [Concomitant]
  8. TARDYFERON [Concomitant]
  9. ESCITALOPRAM [Concomitant]
  10. FORLAX [Concomitant]
  11. TROSPIUM CHLORIDE [Concomitant]
  12. KEPPRA [Concomitant]
  13. MOTILIUM [Concomitant]
  14. ENOXAPARIN SODIUM [Concomitant]
  15. SINEMET [Suspect]
     Dates: start: 20120622, end: 20120806

REACTIONS (3)
  - Incorrect dose administered [None]
  - Parkinson^s disease [None]
  - Dyskinesia [None]
